FAERS Safety Report 8486590-0 (Version None)
Quarter: 2012Q3

REPORT INFORMATION
  Report Type: 
  Country: None (occurrence: None)
  Receive Date: 20120703
  Receipt Date: 20120628
  Transmission Date: 20120928
  Serious: No
  Sender: FDA-Public Use
  Company Number: US-PFIZER INC-2012122255

PATIENT
  Sex: Female

DRUGS (3)
  1. EFFEXOR XR [Suspect]
     Indication: ANXIETY
  2. EFFEXOR XR [Suspect]
     Indication: DEPRESSION
     Dosage: 37.5 MG, 1X/DAY
     Route: 048
     Dates: start: 20050101, end: 20120401
  3. LOVASTATIN [Concomitant]
     Dosage: 10 MG,1X/DAY

REACTIONS (4)
  - WITHDRAWAL SYNDROME [None]
  - TREMOR [None]
  - PARANOIA [None]
  - NAUSEA [None]
